FAERS Safety Report 6970195-4 (Version None)
Quarter: 2010Q3

REPORT INFORMATION
  Report Type: 
  Country: None (occurrence: None)
  Receive Date: 20100908
  Receipt Date: 20100830
  Transmission Date: 20110219
  Serious: Yes (Hospitalization, Other)
  Sender: FDA-Public Use
  Company Number: US-ASTRAZENECA-2009UW04370

PATIENT
  Age: 62 Year
  Sex: Female
  Weight: 57.6 kg

DRUGS (12)
  1. ARIMIDEX [Suspect]
     Indication: BREAST CANCER
     Route: 048
     Dates: start: 20060101
  2. OMEPRAZOLE [Concomitant]
     Indication: GASTRIC DISORDER
     Route: 048
  3. SIMVASTATIN [Concomitant]
     Indication: HYPERCHOLESTEROLAEMIA
  4. DIAZEPAM [Concomitant]
     Indication: SLEEP DISORDER
  5. DIAZEPAM [Concomitant]
     Indication: ANXIETY
  6. DICLOFENAC SODIUM [Concomitant]
  7. VICODIN [Concomitant]
  8. GABERPERTIN [Concomitant]
  9. HYCODOHL [Concomitant]
  10. ACTONEL [Concomitant]
  11. MULTI-VITAMINS [Concomitant]
     Indication: MEDICAL DIET
     Dosage: UNKNOWN DOSE DAILY
  12. CALCIUM CITRATE WITH VIT. D [Concomitant]
     Indication: OSTEOPENIA
     Dosage: UNKNOWN DOSE THREE TIMES A DAY

REACTIONS (10)
  - ANXIETY [None]
  - ASTHENIA [None]
  - BONE DISORDER [None]
  - CERVICAL SPINAL STENOSIS [None]
  - GASTRITIS [None]
  - HYPOAESTHESIA [None]
  - OSTEOARTHRITIS [None]
  - ROTATOR CUFF REPAIR [None]
  - SCOLIOSIS [None]
  - WEIGHT DECREASED [None]
